FAERS Safety Report 7326198-3 (Version None)
Quarter: 2011Q1

REPORT INFORMATION
  Report Type: 
  Country: None (occurrence: None)
  Receive Date: 20110302
  Receipt Date: 20110217
  Transmission Date: 20110831
  Serious: Yes (Other)
  Sender: FDA-Public Use
  Company Number: US-ELI_LILLY_AND_COMPANY-US201102005593

PATIENT
  Age: 38 Year
  Sex: Female

DRUGS (3)
  1. STRATTERA [Suspect]
     Dosage: 1 D/F, DAILY (1/D)
     Dates: start: 20110210, end: 20110216
  2. STRATTERA [Suspect]
     Indication: ATTENTION DEFICIT/HYPERACTIVITY DISORDER
     Dosage: 60 MG, DAILY (1/D)
  3. FLUOXETINE [Concomitant]
     Dosage: 20 MG, UNK

REACTIONS (5)
  - INFLAMMATION [None]
  - SINUSITIS [None]
  - INTRAOCULAR PRESSURE INCREASED [None]
  - EYE PAIN [None]
  - INSOMNIA [None]
